FAERS Safety Report 13784383 (Version 3)
Quarter: 2025Q4

REPORT INFORMATION
  Report Type: Spontaneous
  Country: US (occurrence: US)
  Receive Date: 20170724
  Receipt Date: 20251111
  Transmission Date: 20260118
  Serious: Yes (Death, Life-Threatening, Hospitalization)
  Sender: BAUSCH AND LOMB
  Company Number: US-MLMSERVICE-20161121-0507649-1

PATIENT
  Age: 51 Year
  Sex: Male

DRUGS (6)
  1. ACYCLOVIR [Suspect]
     Active Substance: ACYCLOVIR
     Indication: Herpes simplex anorectal
     Route: 042
  2. VALACYCLOVIR HYDROCHLORIDE [Suspect]
     Active Substance: VALACYCLOVIR HYDROCHLORIDE
     Indication: Prophylaxis
     Route: 048
  3. VALACYCLOVIR HYDROCHLORIDE [Suspect]
     Active Substance: VALACYCLOVIR HYDROCHLORIDE
     Route: 048
  4. VANCOMYCIN [Concomitant]
     Active Substance: VANCOMYCIN
     Indication: Liver abscess
     Route: 042
  5. MEROPENEM [Concomitant]
     Active Substance: MEROPENEM
     Indication: Liver abscess
     Route: 042
  6. AMPHOTERICIN B [Concomitant]
     Active Substance: AMPHOTERICIN B
     Indication: Product used for unknown indication
     Route: 042

REACTIONS (6)
  - Acute hepatic failure [Fatal]
  - Drug resistance [Unknown]
  - Herpes simplex [Unknown]
  - Coagulopathy [Unknown]
  - Mental status changes [Unknown]
  - Gastrointestinal haemorrhage [Unknown]
